FAERS Safety Report 12255599 (Version 1)
Quarter: 2016Q2

REPORT INFORMATION
  Report Type: Report from Study
  Country: US (occurrence: US)
  Receive Date: 20160412
  Receipt Date: 20160412
  Transmission Date: 20160815
  Serious: Yes (Other)
  Sender: FDA-Public Use
  Company Number: US-BAXTER-2016BAX019108

PATIENT

DRUGS (7)
  1. PREMASOL - SULFITE-FREE (AMINO ACID) [Suspect]
     Active Substance: ALANINE\ARGININE\ASPARTIC ACID\CYSTEINE HYDROCHLORIDE\GLUTAMIC ACID\GLYCINE\HISTIDINE\ISOLEUCINE\LEUCINE\LYSINE ACETATE\METHIONINE\N-ACETYL-TYROSINE\PHENYLALANINE\PROLINE\SERINE\TAURINE\THREONINE\TRYPTOPHAN\TYROSINE\VALINE
     Indication: PARENTERAL NUTRITION
     Route: 042
  2. 5% DEXTROSE INJECTION, USP [Suspect]
     Active Substance: DEXTROSE
     Indication: PARENTERAL NUTRITION
     Route: 042
  3. CYSTEINE [Suspect]
     Active Substance: CYSTEINE
     Indication: PARENTERAL NUTRITION
     Dosage: 40 MG/G OF AMINO ACID
     Route: 042
  4. CARNITINE [Suspect]
     Active Substance: CARNITINE
     Indication: PARENTERAL NUTRITION
     Route: 042
  5. HEPARIN [Concomitant]
     Active Substance: HEPARIN SODIUM
     Indication: PRODUCT USED FOR UNKNOWN INDICATION
     Route: 042
  6. INTRALIPID [Suspect]
     Active Substance: EGG PHOSPHOLIPIDS\GLYCERIN\SOYBEAN OIL
     Indication: PARENTERAL NUTRITION
     Route: 042
  7. MULTITRACE [Suspect]
     Active Substance: CHROMIC CHLORIDE\CUPRIC CHLORIDE\MANGANESE CHLORIDE\ZINC CHLORIDE
     Indication: PARENTERAL NUTRITION
     Route: 042

REACTIONS (1)
  - Parenteral nutrition associated liver disease [Unknown]
